FAERS Safety Report 14561671 (Version 4)
Quarter: 2018Q2

REPORT INFORMATION
  Report Type: Spontaneous
  Country: CA (occurrence: CA)
  Receive Date: 20180222
  Receipt Date: 20180424
  Transmission Date: 20180711
  Serious: Yes (Hospitalization, Other)
  Sender: FDA-Public Use
  Company Number: CA-ROCHE-2075900

PATIENT
  Age: 68 Year
  Sex: Female

DRUGS (14)
  1. XOLAIR [Suspect]
     Active Substance: OMALIZUMAB
     Route: 058
     Dates: start: 20180213
  2. SYMBICORT [Concomitant]
     Active Substance: BUDESONIDE\FORMOTEROL FUMARATE DIHYDRATE
     Indication: ASTHMA
     Route: 055
     Dates: start: 2012
  3. SINGULAIR [Concomitant]
     Active Substance: MONTELUKAST SODIUM
     Indication: ASTHMA
     Dosage: 1 DF OF 10 MG
     Route: 048
     Dates: start: 2012
  4. SINGULAIR [Concomitant]
     Active Substance: MONTELUKAST SODIUM
     Dosage: 2 DF (2.5 MCG), QD
     Route: 055
     Dates: start: 20170626
  5. XOLAIR [Suspect]
     Active Substance: OMALIZUMAB
     Route: 058
     Dates: start: 20180116
  6. XOLAIR [Suspect]
     Active Substance: OMALIZUMAB
     Route: 058
     Dates: start: 20171219
  7. BRICANYL [Concomitant]
     Active Substance: TERBUTALINE SULFATE
     Indication: ASTHMA
     Route: 055
     Dates: start: 2013
  8. DEXILANT [Concomitant]
     Active Substance: DEXLANSOPRAZOLE
     Indication: GASTROOESOPHAGEAL REFLUX DISEASE
     Route: 048
     Dates: start: 2012
  9. XOLAIR [Suspect]
     Active Substance: OMALIZUMAB
     Indication: ASTHMA
     Route: 058
     Dates: start: 20171123
  10. VALSARTAN. [Suspect]
     Active Substance: VALSARTAN
     Indication: HYPERTENSION
     Route: 048
     Dates: start: 2012
  11. BISOPROLOL [Concomitant]
     Active Substance: BISOPROLOL
     Indication: HYPERTENSION
     Route: 048
     Dates: start: 2012
  12. BROMAZEPAM [Concomitant]
     Active Substance: BROMAZEPAM
     Indication: FIBROMYALGIA
     Route: 048
     Dates: start: 1996
  13. PREGABALIN. [Concomitant]
     Active Substance: PREGABALIN
     Indication: FIBROMYALGIA
     Route: 048
     Dates: start: 2012
  14. APO-DOXAZOSIN [Concomitant]
     Active Substance: DOXAZOSIN MESYLATE
     Indication: HYPERTENSION
     Route: 048
     Dates: start: 2012

REACTIONS (6)
  - Dyspnoea at rest [Not Recovered/Not Resolved]
  - Blood pressure increased [Unknown]
  - Drug ineffective [Unknown]
  - Bronchitis [Unknown]
  - Influenza [Not Recovered/Not Resolved]
  - Pulmonary oedema [Unknown]

NARRATIVE: CASE EVENT DATE: 20171219
